FAERS Safety Report 9322948 (Version 2)
Quarter: 2015Q4

REPORT INFORMATION
  Report Type: Report from Study
  Country: US (occurrence: US)
  Receive Date: 20130603
  Receipt Date: 20151012
  Transmission Date: 20160305
  Serious: Yes (Death)
  Sender: FDA-Public Use
  Company Number: US-ROCHE-1230864

PATIENT
  Age: 57 Year
  Sex: Male

DRUGS (1)
  1. CATHFLO ACTIVASE [Suspect]
     Active Substance: ALTEPLASE
     Indication: MEDICAL DEVICE COMPLICATION
     Dosage: VOLUME DOSE: 2 ML.
     Route: 042
     Dates: start: 20130221

REACTIONS (1)
  - Death [Fatal]

NARRATIVE: CASE EVENT DATE: 20130303
